FAERS Safety Report 8571073-X (Version None)
Quarter: 2012Q3

REPORT INFORMATION
  Report Type: 
  Country: None (occurrence: None)
  Receive Date: 20120730
  Receipt Date: 20120730
  Transmission Date: 20120928
  Serious: Yes (Hospitalization)
  Sender: FDA-Public Use
  Company Number: None

PATIENT
  Age: 35 Year
  Sex: Male
  Weight: 90.7194 kg

DRUGS (1)
  1. PRAZOSIN HCL [Suspect]
     Indication: NIGHTMARE
     Dosage: 2MG QHS PO
     Route: 048

REACTIONS (5)
  - DYSPNOEA [None]
  - CHEST DISCOMFORT [None]
  - RASH [None]
  - HEART RATE INCREASED [None]
  - HYPERHIDROSIS [None]
